FAERS Safety Report 7978395-1 (Version None)
Quarter: 2011Q4

REPORT INFORMATION
  Report Type: 
  Country: None (occurrence: None)
  Receive Date: 20111205
  Receipt Date: 20111124
  Transmission Date: 20120403
  Serious: Yes (Other)
  Sender: FDA-Public Use
  Company Number: 2011SP017864

PATIENT
  Age: 40 Year
  Sex: Male
  Weight: 67 kg

DRUGS (4)
  1. FLUNITRAZEPAM [Concomitant]
  2. REMERON [Suspect]
     Indication: DEPRESSION
     Dosage: 15 MG; QD; PO, 30 MG;QD;PO, 15 MG;QD;PO
     Route: 048
     Dates: start: 20110320
  3. REMERON [Suspect]
     Indication: DEPRESSION
     Dosage: 15 MG; QD; PO, 30 MG;QD;PO, 15 MG;QD;PO
     Route: 048
     Dates: start: 20110306, end: 20110319
  4. REMERON [Suspect]
     Indication: DEPRESSION
     Dosage: 15 MG; QD; PO, 30 MG;QD;PO, 15 MG;QD;PO
     Route: 048
     Dates: start: 20110213, end: 20110305

REACTIONS (2)
  - AGGRESSION [None]
  - MANIA [None]
